FAERS Safety Report 10486208 (Version 1)
Quarter: 2014Q3

REPORT INFORMATION
  Report Type: Spontaneous
  Country: US (occurrence: None)
  Receive Date: 20140930
  Receipt Date: 20140930
  Transmission Date: 20150326
  Serious: Yes (Hospitalization, Other)
  Sender: FDA-Public Use
  Company Number: None

PATIENT
  Age: 69 Year
  Sex: Female
  Weight: 90.72 kg

DRUGS (1)
  1. MICARDIS [Suspect]
     Active Substance: TELMISARTAN
     Indication: HYPERTENSION
     Dosage: 1 A DAY ONCE DAILY TAKEN BY MOUTH
     Route: 048
     Dates: start: 20040209, end: 20140922

REACTIONS (7)
  - Sinus headache [None]
  - Vision blurred [None]
  - Swelling face [None]
  - Diarrhoea [None]
  - Product quality issue [None]
  - Sinusitis [None]
  - Eye pain [None]

NARRATIVE: CASE EVENT DATE: 20140330
